FAERS Safety Report 25958242 (Version 1)
Quarter: 2025Q4

REPORT INFORMATION
  Report Type: Spontaneous
  Country: IN (occurrence: IN)
  Receive Date: 20251024
  Receipt Date: 20251024
  Transmission Date: 20260117
  Serious: Yes (Other)
  Sender: ABBVIE
  Company Number: IN-ABBVIE-6103992

PATIENT
  Age: 75 Year
  Sex: Male

DRUGS (2)
  1. OZURDEX [Suspect]
     Active Substance: DEXAMETHASONE
     Indication: Diabetic retinal oedema
     Dosage: TIME INTERVAL: AS NECESSARY: FORM STRENGTH: 0.7 MILLIGRAM
     Route: 050
     Dates: start: 202501
  2. OZURDEX [Suspect]
     Active Substance: DEXAMETHASONE
     Dosage: TIME INTERVAL: AS NECESSARY: 3 TO 4 OZURDEX INJECTIONS
     Route: 050
     Dates: start: 2024, end: 2024

REACTIONS (5)
  - Endophthalmitis [Recovering/Resolving]
  - Product contamination microbial [Unknown]
  - Pain [Unknown]
  - Eye haemorrhage [Unknown]
  - Vascular induration [Unknown]

NARRATIVE: CASE EVENT DATE: 20250121
